FAERS Safety Report 6867694-2 (Version None)
Quarter: 2010Q3

REPORT INFORMATION
  Report Type: 
  Country: None (occurrence: None)
  Receive Date: 20100722
  Receipt Date: 20100510
  Transmission Date: 20110219
  Serious: No
  Sender: FDA-Public Use
  Company Number: US-BAUSCH-2010BL002495

PATIENT
  Age: 48 Year
  Sex: Female

DRUGS (2)
  1. OPCON-A [Suspect]
     Indication: EYE ALLERGY
     Route: 047
     Dates: start: 20100509, end: 20100509
  2. OPCON-A [Suspect]
     Indication: EYE DISCHARGE
     Route: 047
     Dates: start: 20100509, end: 20100509

REACTIONS (5)
  - EYE IRRITATION [None]
  - EYELID MARGIN CRUSTING [None]
  - FOREIGN BODY SENSATION IN EYES [None]
  - MEDICATION RESIDUE [None]
  - VISION BLURRED [None]
